FAERS Safety Report 23698138 (Version 5)
Quarter: 2025Q4

REPORT INFORMATION
  Report Type: Report from Study
  Country: US (occurrence: US)
  Receive Date: 20240402
  Receipt Date: 20251127
  Transmission Date: 20260118
  Serious: Yes (Hospitalization, Other)
  Sender: SANDOZ
  Company Number: US-SANDOZ-SDZ2024US034719

PATIENT
  Age: 34 Year
  Sex: Female
  Weight: 83.9 kg

DRUGS (10)
  1. TREPROSTINIL [Suspect]
     Active Substance: TREPROSTINIL
     Indication: Pulmonary arterial hypertension
     Dosage: 27 NG/KG/MIN, CONT, STRENGTH-1 MG/ML
     Route: 042
     Dates: start: 20240229
  2. TREPROSTINIL [Suspect]
     Active Substance: TREPROSTINIL
     Dosage: 34 NG/KG/ MIN, CONT, STRENGTH-1 MG/ML
     Route: 042
  3. TREPROSTINIL [Suspect]
     Active Substance: TREPROSTINIL
     Dosage: 48 NG/KG/ MIN, CONT, STRENGTH-1 MG/ML
     Route: 042
  4. TREPROSTINIL [Suspect]
     Active Substance: TREPROSTINIL
     Dosage: 29 NG/KG/ MIN, CONT, STRENGTH-1 MG/ML
     Route: 042
  5. ALBUTEROL SULFATE [Concomitant]
     Active Substance: ALBUTEROL SULFATE
     Indication: Product used for unknown indication
     Dosage: UNK
     Route: 065
  6. AMBRISENTAN [Concomitant]
     Active Substance: AMBRISENTAN
     Indication: Product used for unknown indication
     Dosage: UNK
     Route: 065
  7. OXYGEN [Concomitant]
     Active Substance: OXYGEN
     Indication: Product used for unknown indication
     Dosage: UNK
     Route: 065
  8. POTASSIUM CHLORIDE [Concomitant]
     Active Substance: POTASSIUM CHLORIDE
     Indication: Product used for unknown indication
     Dosage: UNK
     Route: 065
  9. SILDENAFIL CITRATE [Concomitant]
     Active Substance: SILDENAFIL CITRATE
     Indication: Product used for unknown indication
     Dosage: UNK
     Route: 065
  10. TORSEMIDE [Concomitant]
     Active Substance: TORSEMIDE
     Indication: Product used for unknown indication
     Dosage: UNK
     Route: 065

REACTIONS (3)
  - Complication associated with device [Unknown]
  - Pulmonary congestion [Unknown]
  - Nasopharyngitis [Unknown]

NARRATIVE: CASE EVENT DATE: 20251101
